FAERS Safety Report 8037083-6 (Version None)
Quarter: 2012Q1

REPORT INFORMATION
  Report Type: 
  Country: None (occurrence: None)
  Receive Date: 20120111
  Receipt Date: 20120111
  Transmission Date: 20120608
  Serious: Yes (Death)
  Sender: FDA-Public Use
  Company Number: US-GLAXOSMITHKLINE-A0958395A

PATIENT
  Sex: Male

DRUGS (1)
  1. AVANDIA [Suspect]
     Indication: PRODUCT USED FOR UNKNOWN INDICATION
     Route: 065

REACTIONS (10)
  - LETHARGY [None]
  - LABORATORY TEST ABNORMAL [None]
  - CEREBRAL HAEMORRHAGE [None]
  - THROMBOCYTOPENIA [None]
  - ABDOMINAL DISTENSION [None]
  - ACCIDENTAL POISONING [None]
  - RENAL FAILURE [None]
  - SOMNOLENCE [None]
  - DIABETES MELLITUS [None]
  - ASCITES [None]
